FAERS Safety Report 5613695-1 (Version None)
Quarter: 2008Q1

REPORT INFORMATION
  Report Type: 
  Country: None (occurrence: None)
  Receive Date: 20080205
  Receipt Date: 20080129
  Transmission Date: 20080703
  Serious: Yes (Other)
  Sender: FDA-Public Use
  Company Number: US-JNJFOC-20080107362

PATIENT
  Sex: Male
  Weight: 89.81 kg

DRUGS (7)
  1. REMICADE [Suspect]
     Indication: RHEUMATOID ARTHRITIS
     Route: 042
  2. BONIVA [Concomitant]
  3. CALCIUM PLUS VIT D [Concomitant]
  4. ZANTAC [Concomitant]
     Dosage: AS NEEDED
  5. LODINE [Concomitant]
  6. PRILOSEC [Concomitant]
  7. MULTI-VITAMIN [Concomitant]

REACTIONS (1)
  - PROSTATE CANCER [None]
